FAERS Safety Report 17824045 (Version 4)
Quarter: 2020Q3

REPORT INFORMATION
  Report Type: Spontaneous
  Country: US (occurrence: US)
  Receive Date: 20200526
  Receipt Date: 20200703
  Transmission Date: 20201102
  Serious: Yes (Other)
  Sender: FDA-Public Use
  Company Number: US-AMGEN-USASP2020082449

PATIENT
  Age: 19 Year
  Sex: Male
  Weight: 57 kg

DRUGS (6)
  1. VENOFER [Concomitant]
     Active Substance: IRON SUCROSE
     Indication: NEPHROGENIC ANAEMIA
     Dosage: 50 MILLIGRAM, QWK
     Dates: start: 20181024
  2. EPOGEN [Suspect]
     Active Substance: ERYTHROPOIETIN
     Dosage: 4000 UNITS, 3 TIMES/WK
     Route: 058
     Dates: start: 201502
  3. FOLIC ACID. [Concomitant]
     Active Substance: FOLIC ACID
     Indication: NEPHROGENIC ANAEMIA
     Dosage: UNK
  4. IRON [Concomitant]
     Active Substance: IRON
     Indication: NEPHROGENIC ANAEMIA
     Dosage: UNK
  5. EPOGEN [Suspect]
     Active Substance: ERYTHROPOIETIN
     Indication: NEPHROGENIC ANAEMIA
     Dosage: 4000 UNITS, 3 TIMES/WK
     Route: 042
     Dates: start: 201502
  6. EPOGEN [Suspect]
     Active Substance: ERYTHROPOIETIN
     Dosage: INCREASED DOSE
     Route: 065

REACTIONS (1)
  - Anti-erythropoietin antibody positive [Unknown]

NARRATIVE: CASE EVENT DATE: 20200601
